FAERS Safety Report 9171969 (Version 2)
Quarter: 2013Q2

REPORT INFORMATION
  Report Type: Report from Study
  Country: US (occurrence: US)
  Receive Date: 20130319
  Receipt Date: 20130418
  Transmission Date: 20140414
  Serious: No
  Sender: FDA-Public Use
  Company Number: US-ABBOTT-13P-163-1062546-00

PATIENT
  Age: 45 Year
  Sex: Male

DRUGS (7)
  1. HUMIRA PEN [Suspect]
     Indication: PSORIASIS
     Dates: start: 201211
  2. CETAPHIL [Suspect]
     Indication: RASH
     Dosage: LOTION
     Route: 061
  3. STEROID MEDICATION [Suspect]
     Indication: PSORIASIS
     Route: 061
     Dates: end: 20130228
  4. LORAZEPAM [Concomitant]
     Indication: ANXIETY
     Route: 048
  5. SUNSCREEN [Concomitant]
     Indication: HEAVY EXPOSURE TO ULTRAVIOLET LIGHT
  6. OMEPRAZOLE [Concomitant]
     Indication: GASTROOESOPHAGEAL REFLUX DISEASE
     Route: 048
  7. AMBIEN [Concomitant]
     Indication: INSOMNIA
     Route: 048

REACTIONS (9)
  - Skin warm [Unknown]
  - Influenza like illness [Recovered/Resolved]
  - Drug effect incomplete [Not Recovered/Not Resolved]
  - Psoriasis [Not Recovered/Not Resolved]
  - Rash erythematous [Not Recovered/Not Resolved]
  - Pain of skin [Not Recovered/Not Resolved]
  - Rash pruritic [Unknown]
  - Application site pain [Unknown]
  - Heavy exposure to ultraviolet light [Unknown]
